FAERS Safety Report 22529854 (Version 2)
Quarter: 2023Q2

REPORT INFORMATION
  Report Type: Spontaneous
  Country: US (occurrence: US)
  Receive Date: 20230607
  Receipt Date: 20230613
  Transmission Date: 20230722
  Serious: Yes (Death)
  Sender: FDA-Public Use
  Company Number: US-Accord-361269

PATIENT
  Age: 79 Year
  Sex: Male

DRUGS (9)
  1. FLUOROURACIL [Suspect]
     Active Substance: FLUOROURACIL
     Indication: Oesophageal adenocarcinoma
     Dosage: DAY 1; Q14D
     Route: 042
     Dates: start: 20230516, end: 20230516
  2. OXALIPLATIN [Suspect]
     Active Substance: OXALIPLATIN
     Indication: Oesophageal adenocarcinoma
     Dosage: DAY 1
     Route: 042
     Dates: start: 20230516, end: 20230516
  3. TISLELIZUMAB [Suspect]
     Active Substance: TISLELIZUMAB
     Indication: Oesophageal adenocarcinoma
     Route: 042
     Dates: start: 20230516, end: 20230516
  4. LEUCOVORIN [Suspect]
     Active Substance: LEUCOVORIN
     Indication: Oesophageal adenocarcinoma
     Route: 042
     Dates: start: 20230516, end: 20230516
  5. FOLIC ACID [Concomitant]
     Active Substance: FOLIC ACID
  6. PROCHLORPERAZINE [Concomitant]
     Active Substance: PROCHLORPERAZINE
  7. SENOKOT [Concomitant]
     Active Substance: SENNOSIDES
  8. ONDANSETRON [Concomitant]
     Active Substance: ONDANSETRON
  9. POLYETHYLENE GLYCOL [Concomitant]
     Active Substance: POLYETHYLENE GLYCOL

REACTIONS (1)
  - Cardiac arrest [Fatal]

NARRATIVE: CASE EVENT DATE: 20230521
